FAERS Safety Report 24842155 (Version 1)
Quarter: 2025Q1

REPORT INFORMATION
  Report Type: Spontaneous
  Country: US (occurrence: US)
  Receive Date: 20250115
  Receipt Date: 20250115
  Transmission Date: 20250409
  Serious: No
  Sender: ROCHE
  Company Number: US-ROCHE-10000178999

PATIENT
  Age: 10 Year
  Sex: Male

DRUGS (1)
  1. HEMLIBRA [Suspect]
     Active Substance: EMICIZUMAB-KXWH
     Indication: Factor VIII deficiency
     Dosage: STRENGTH: 105 MG /0.7 ML
     Route: 058
     Dates: start: 202310

REACTIONS (1)
  - Head injury [Unknown]

NARRATIVE: CASE EVENT DATE: 20241208
